FAERS Safety Report 4632764-6 (Version None)
Quarter: 2005Q2

REPORT INFORMATION
  Report Type: 
  Country: None (occurrence: None)
  Receive Date: 20050412
  Receipt Date: 20050401
  Transmission Date: 20051028
  Serious: Yes (Hospitalization)
  Sender: FDA-Public Use
  Company Number: BR-ABBOTT-05P-020-0296193-00

PATIENT
  Age: 49 Year
  Sex: Female
  Weight: 74 kg

DRUGS (2)
  1. PLENTY [Suspect]
     Indication: WEIGHT CONTROL
     Route: 048
     Dates: start: 20050301
  2. FERROUS [Concomitant]
     Indication: ANAEMIA

REACTIONS (2)
  - CYSTITIS [None]
  - THIRST [None]
